FAERS Safety Report 6429463-7 (Version None)
Quarter: 2009Q4

REPORT INFORMATION
  Report Type: 
  Country: None (occurrence: None)
  Receive Date: 20091105
  Receipt Date: 20090908
  Transmission Date: 20100525
  Serious: No
  Sender: FDA-Public Use
  Company Number: US-ABBOTT-09P-163-0591317-00

PATIENT
  Sex: Male

DRUGS (2)
  1. KALETRA [Suspect]
     Indication: HIV INFECTION
     Dosage: 2 TABS IN AM AND 2 TABS IN PM
     Dates: start: 20050101
  2. LEXIVA [Suspect]
     Indication: HIV INFECTION
     Dates: start: 20050101

REACTIONS (7)
  - ABDOMINAL PAIN [None]
  - ARTHRALGIA [None]
  - BLOOD TRIGLYCERIDES INCREASED [None]
  - DIARRHOEA [None]
  - DRUG DOSE OMISSION [None]
  - HEADACHE [None]
  - SKIN NODULE [None]
